FAERS Safety Report 17101052 (Version 1)
Quarter: 2019Q4

REPORT INFORMATION
  Report Type: Report from Study
  Country: IT (occurrence: IT)
  Receive Date: 20191202
  Receipt Date: 20191202
  Transmission Date: 20200122
  Serious: Yes (Hospitalization)
  Sender: FDA-Public Use
  Company Number: IT-PFIZER INC-2019416093

PATIENT
  Age: 52 Year
  Sex: Male

DRUGS (4)
  1. EN [Suspect]
     Active Substance: DELORAZEPAM
     Indication: TENSION
     Dosage: 20 ML, DAILY (TOTAL)
     Route: 048
     Dates: start: 20190831, end: 20190831
  2. TAVOR (LORAZEPAM) [Suspect]
     Active Substance: LORAZEPAM
     Indication: TENSION
     Dosage: 7 MG, DAILY (TOTAL)
     Route: 048
     Dates: start: 20190831, end: 20190831
  3. TAVOR (LORAZEPAM) [Suspect]
     Active Substance: LORAZEPAM
     Indication: INSOMNIA
  4. EN [Suspect]
     Active Substance: DELORAZEPAM
     Indication: INSOMNIA

REACTIONS (3)
  - Drug abuse [Recovered/Resolved]
  - Mood altered [Recovered/Resolved]
  - Movement disorder [Recovered/Resolved]

NARRATIVE: CASE EVENT DATE: 20190831
